FAERS Safety Report 25484522 (Version 1)
Quarter: 2025Q2

REPORT INFORMATION
  Report Type: Spontaneous
  Country: US (occurrence: None)
  Receive Date: 20250626
  Receipt Date: 20250626
  Transmission Date: 20250716
  Serious: Yes (Life-Threatening, Hospitalization)
  Sender: FDA-CTU
  Company Number: None

PATIENT
  Age: 42 Year
  Sex: Female
  Weight: 58.5 kg

DRUGS (1)
  1. HERBALS [Suspect]
     Active Substance: HERBALS

REACTIONS (7)
  - Hallucinations, mixed [None]
  - Anxiety [None]
  - Myocardial infarction [None]
  - Dizziness [None]
  - Blood pressure fluctuation [None]
  - Panic reaction [None]
  - Suicidal ideation [None]

NARRATIVE: CASE EVENT DATE: 20230314
